FAERS Safety Report 21019298 (Version 2)
Quarter: 2022Q3

REPORT INFORMATION
  Report Type: Spontaneous
  Country: US (occurrence: US)
  Receive Date: 20220628
  Receipt Date: 20220704
  Transmission Date: 20221027
  Serious: No
  Sender: FDA-Public Use
  Company Number: US-ORGANON-O2206USA002170

PATIENT
  Age: 34 Year
  Sex: Female
  Weight: 158.46 kg

DRUGS (1)
  1. NEXPLANON [Suspect]
     Active Substance: ETONOGESTREL
     Dosage: 1 IMPLANT
     Dates: start: 20220621

REACTIONS (3)
  - Complication of device insertion [Unknown]
  - Device use error [Unknown]
  - No adverse event [Unknown]

NARRATIVE: CASE EVENT DATE: 20220621
